FAERS Safety Report 4324494-5 (Version None)
Quarter: 2004Q1

REPORT INFORMATION
  Report Type: 
  Country: None (occurrence: None)
  Receive Date: 20040326
  Receipt Date: 20040220
  Transmission Date: 20041129
  Serious: No
  Sender: FDA-Public Use
  Company Number: US-GLAXOSMITHKLINE-A0499227A

PATIENT
  Age: 73 Year
  Sex: Female

DRUGS (4)
  1. ADVAIR DISKUS 100/50 [Suspect]
     Route: 055
     Dates: start: 20040213, end: 20040215
  2. AVAPRO [Concomitant]
  3. NIFEDIPINE [Concomitant]
  4. HYDROCHLOROTHIAZIDE [Concomitant]
     Route: 065

REACTIONS (7)
  - CHEILITIS [None]
  - FATIGUE [None]
  - GLOSSODYNIA [None]
  - HEADACHE [None]
  - HEART RATE INCREASED [None]
  - NAUSEA [None]
  - TREMOR [None]
